FAERS Safety Report 15256759 (Version 1)
Quarter: 2018Q3

REPORT INFORMATION
  Report Type: Spontaneous
  Country: SG (occurrence: SG)
  Receive Date: 20180808
  Receipt Date: 20180808
  Transmission Date: 20181010
  Serious: Yes (Hospitalization, Other)
  Sender: FDA-Public Use
  Company Number: SG-SA-2018SA104746

PATIENT
  Age: 36 Year
  Sex: Male

DRUGS (3)
  1. RIFAMPICIN [Suspect]
     Active Substance: RIFAMPIN
     Indication: SUICIDE ATTEMPT
  2. ISONIAZID. [Concomitant]
     Active Substance: ISONIAZID
     Indication: JOINT TUBERCULOSIS
  3. RIFAMPICIN [Suspect]
     Active Substance: RIFAMPIN
     Indication: JOINT TUBERCULOSIS
     Dosage: 30 CAPSULES OF 300 MG
     Route: 065

REACTIONS (25)
  - Intentional overdose [Unknown]
  - Hepatic necrosis [Recovering/Resolving]
  - Oliguria [Recovering/Resolving]
  - Unresponsive to stimuli [Unknown]
  - Red man syndrome [Unknown]
  - Hyperkalaemia [Recovered/Resolved]
  - Epilepsy [Unknown]
  - Eye movement disorder [Unknown]
  - Somnolence [Unknown]
  - Cholestasis [Recovering/Resolving]
  - Ecchymosis [Unknown]
  - Depressed level of consciousness [Unknown]
  - Tongue biting [Unknown]
  - Hepatitis cholestatic [Recovering/Resolving]
  - Skin discolouration [Unknown]
  - Restlessness [Unknown]
  - Liver injury [Recovering/Resolving]
  - Acute kidney injury [Recovering/Resolving]
  - Tear discolouration [Unknown]
  - Tongue haemorrhage [Unknown]
  - Jaundice [Recovering/Resolving]
  - Metabolic acidosis [Recovering/Resolving]
  - Chromaturia [Recovering/Resolving]
  - Pulmonary oedema [Unknown]
  - Tooth fracture [Unknown]
